FAERS Safety Report 9911686 (Version 1)
Quarter: 2014Q1

REPORT INFORMATION
  Report Type: Spontaneous
  Country: US (occurrence: US)
  Receive Date: 20140219
  Receipt Date: 20140219
  Transmission Date: 20141002
  Serious: No
  Sender: FDA-Public Use
  Company Number: US-ASTRAZENECA-2013SE80164

PATIENT
  Age: 59 Year
  Sex: Female

DRUGS (2)
  1. LISINOPRIL HCT [Suspect]
     Route: 048
  2. DIOVAN [Concomitant]
     Indication: BLOOD PRESSURE ABNORMAL

REACTIONS (2)
  - Adverse event [Unknown]
  - Drug ineffective [Unknown]
